FAERS Safety Report 8599375-1 (Version None)
Quarter: 2012Q3

REPORT INFORMATION
  Report Type: 
  Country: None (occurrence: None)
  Receive Date: 20120816
  Receipt Date: 20111130
  Transmission Date: 20120928
  Serious: Yes (Hospitalization, Other)
  Sender: FDA-Public Use
  Company Number: PT-BAYER-2011-115650

PATIENT
  Age: 43 Year
  Sex: Female

DRUGS (3)
  1. PAROXETINE [Concomitant]
     Route: 048
  2. BETAFERON [Suspect]
     Indication: SECONDARY PROGRESSIVE MULTIPLE SCLEROSIS
     Dosage: 250 MCG/ML, QOD
     Route: 058
     Dates: start: 19960101
  3. DITROPAN [Concomitant]
     Route: 048

REACTIONS (8)
  - ANAEMIA [None]
  - INJECTION SITE ERYTHEMA [None]
  - SEPSIS [None]
  - PYREXIA [None]
  - LEUKOPENIA [None]
  - PALLOR [None]
  - CHILLS [None]
  - NON-HODGKIN'S LYMPHOMA [None]
